FAERS Safety Report 7784378-7 (Version None)
Quarter: 2011Q3

REPORT INFORMATION
  Report Type: 
  Country: None (occurrence: None)
  Receive Date: 20110928
  Receipt Date: 20110926
  Transmission Date: 20111222
  Serious: Yes (Death)
  Sender: FDA-Public Use
  Company Number: PHHY2011MX85457

PATIENT
  Sex: Female

DRUGS (1)
  1. EXFORGE [Suspect]
     Indication: HYPERTENSION
     Dosage: 1 DF, QD, 160 MG VALS AND 5 MG AMLO

REACTIONS (1)
  - CARDIAC ARREST [None]
